FAERS Safety Report 23180564 (Version 1)
Quarter: 2023Q4

REPORT INFORMATION
  Report Type: Spontaneous
  Country: DE (occurrence: DE)
  Receive Date: 20231114
  Receipt Date: 20231114
  Transmission Date: 20240110
  Serious: Yes (Other)
  Sender: FDA-Public Use
  Company Number: DE-ALKEM LABORATORIES LIMITED-DE-ALKEM-2023-13786

PATIENT
  Age: 24 Year
  Sex: Male
  Weight: 90 kg

DRUGS (3)
  1. IBUPROFEN [Suspect]
     Active Substance: IBUPROFEN
     Indication: Product used for unknown indication
     Dosage: UNK, (CELLULOSE MICROCRYSTALLINE AND CARMELLOSE SODIUM)
     Route: 065
  2. ISOTRETINOIN [Suspect]
     Active Substance: ISOTRETINOIN
     Indication: Product used for unknown indication
     Dosage: UNK
     Route: 065
  3. LENOGRASTIM [Suspect]
     Active Substance: LENOGRASTIM
     Indication: Haematopoietic stem cell mobilisation
     Dosage: UNK
     Route: 058
     Dates: start: 20200913, end: 20200918

REACTIONS (1)
  - Renal hypertension [Recovered/Resolved]

NARRATIVE: CASE EVENT DATE: 20201101
